FAERS Safety Report 13037082 (Version 1)
Quarter: 2016Q4

REPORT INFORMATION
  Report Type: Spontaneous
  Country: US (occurrence: US)
  Receive Date: 20161216
  Receipt Date: 20161216
  Transmission Date: 20170207
  Serious: Yes (Other)
  Sender: FDA-Public Use
  Company Number: US-MYLANLABS-2016M1053462

PATIENT

DRUGS (2)
  1. PIOGLITAZONE AND METFORMIN HYDROCHLORIDE TABLETS [Suspect]
     Active Substance: METFORMIN HYDROCHLORIDE\PIOGLITAZONE HYDROCHLORIDE
     Indication: DIABETES MELLITUS
     Dosage: 15 MG/500MG, BID
     Route: 048
     Dates: start: 2005
  2. PREDNISONE. [Concomitant]
     Active Substance: PREDNISONE
     Indication: ARTHRITIS
     Dosage: 3 MG, QD
     Route: 048

REACTIONS (2)
  - Drug effect decreased [Not Recovered/Not Resolved]
  - Bronchitis [Unknown]

NARRATIVE: CASE EVENT DATE: 2016
